FAERS Safety Report 20769351 (Version 2)
Quarter: 2022Q2

REPORT INFORMATION
  Report Type: Spontaneous
  Country: GB (occurrence: GB)
  Receive Date: 20220429
  Receipt Date: 20220613
  Transmission Date: 20220721
  Serious: Yes (Death, Other)
  Sender: FDA-Public Use
  Company Number: GB-AMGEN-GBRSP2022069399

PATIENT
  Age: 58 Year
  Sex: Female

DRUGS (3)
  1. KANJINTI [Suspect]
     Active Substance: TRASTUZUMAB-ANNS
     Indication: Gallbladder cancer stage IV
     Dosage: 8 MILLIGRAM/KILOGRAM, Q3WK
     Route: 065
     Dates: start: 202011
  2. KANJINTI [Suspect]
     Active Substance: TRASTUZUMAB-ANNS
     Indication: Off label use
     Dosage: 6 MILLIGRAM/KILOGRAM, Q3WK
     Route: 065
  3. LAPATINIB [Suspect]
     Active Substance: LAPATINIB
     Indication: Gallbladder cancer stage IV
     Dosage: 1250 MILLIGRAM, QD
     Route: 065
     Dates: start: 202011

REACTIONS (4)
  - Gallbladder cancer stage IV [Fatal]
  - Gene mutation [Unknown]
  - Drug effective for unapproved indication [Unknown]
  - Off label use [Unknown]

NARRATIVE: CASE EVENT DATE: 20201101
